FAERS Safety Report 7296407-8 (Version None)
Quarter: 2011Q1

REPORT INFORMATION
  Report Type: 
  Country: None (occurrence: None)
  Receive Date: 20110216
  Receipt Date: 20110210
  Transmission Date: 20110831
  Serious: Yes (Other)
  Sender: FDA-Public Use
  Company Number: US-B.I. PHARMACEUTICALS,INC./RIDGEFIELD-2011-BP-02807PF

PATIENT
  Sex: Female

DRUGS (3)
  1. SPIRIVA [Suspect]
     Indication: DYSPNOEA
  2. SPIRIVA [Suspect]
     Indication: CHRONIC OBSTRUCTIVE PULMONARY DISEASE
     Dosage: 18 MCG
     Route: 055
     Dates: start: 20110201
  3. SPIRONOLACTONE [Suspect]
     Route: 065
     Dates: start: 20110201

REACTIONS (8)
  - BLOOD POTASSIUM INCREASED [None]
  - HYPOTENSION [None]
  - INSOMNIA [None]
  - ARTHRALGIA [None]
  - DRUG INEFFECTIVE [None]
  - PULMONARY HYPERTENSION [None]
  - DYSPNOEA [None]
  - BLOOD PRESSURE DECREASED [None]
